FAERS Safety Report 19771633 (Version 1)
Quarter: 2021Q3

REPORT INFORMATION
  Report Type: Spontaneous
  Country: US (occurrence: US)
  Receive Date: 20210901
  Receipt Date: 20210901
  Transmission Date: 20211014
  Serious: Yes (Hospitalization)
  Sender: FDA-Public Use
  Company Number: None

PATIENT
  Age: 79 Year
  Sex: Female
  Weight: 115.2 kg

DRUGS (5)
  1. DILTIAZEM. [Concomitant]
     Active Substance: DILTIAZEM
     Dates: start: 20191018
  2. METFORMIN ER [Concomitant]
     Active Substance: METFORMIN HYDROCHLORIDE
     Dates: start: 20210209
  3. LOSARTIN [Concomitant]
     Active Substance: LOSARTAN
     Dates: start: 20191115
  4. REGEN?COV [Suspect]
     Active Substance: CASIRIVIMAB\IMDEVIMAB
     Indication: COVID-19
     Dosage: ?          OTHER FREQUENCY:ONCE;?
     Route: 041
     Dates: start: 20210826, end: 20210826
  5. LEVOTHROID [Concomitant]
     Active Substance: LEVOTHYROXINE SODIUM
     Dates: start: 20200725

REACTIONS (12)
  - Dyspnoea [None]
  - Bundle branch block left [None]
  - Oxygen saturation decreased [None]
  - Bundle branch block right [None]
  - Cough [None]
  - Pyrexia [None]
  - Rales [None]
  - Supraventricular extrasystoles [None]
  - Acute myocardial infarction [None]
  - COVID-19 [None]
  - Anosmia [None]
  - Dyspepsia [None]

NARRATIVE: CASE EVENT DATE: 20210826
